FAERS Safety Report 9160714 (Version 1)
Quarter: 2013Q1

REPORT INFORMATION
  Report Type: Spontaneous
  Country: IT (occurrence: None)
  Receive Date: 20130219
  Receipt Date: 20130219
  Transmission Date: 20140127
  Serious: Yes (Hospitalization, Other)
  Sender: FDA-Public Use
  Company Number: 2013P1002015

PATIENT
  Age: 60 Year
  Sex: Female

DRUGS (2)
  1. LITHIUM [Suspect]
     Indication: BIPOLAR DISORDER
  2. OLANZAPINE [Suspect]

REACTIONS (14)
  - Toxicity to various agents [None]
  - Cognitive disorder [None]
  - Ataxia [None]
  - Dyskinesia [None]
  - Disturbance in attention [None]
  - Dysphoria [None]
  - Irritability [None]
  - Dementia [None]
  - Aphasia [None]
  - Poverty of thought content [None]
  - Disturbance in attention [None]
  - Apraxia [None]
  - Myoclonus [None]
  - Metabolic encephalopathy [None]
